FAERS Safety Report 11907460 (Version 4)
Quarter: 2020Q3

REPORT INFORMATION
  Report Type: Report from Study
  Country: CA (occurrence: CA)
  Receive Date: 20160111
  Receipt Date: 20160711
  Transmission Date: 20201104
  Serious: Yes (Hospitalization)
  Sender: FDA-Public Use
  Company Number: CA-JNJFOC-20150723256

PATIENT
  Age: 26 Year
  Sex: Male
  Weight: 52.1 kg

DRUGS (8)
  1. SALOFALK [MESALAZINE] [Concomitant]
     Active Substance: MESALAMINE
     Indication: CROHN^S DISEASE
     Route: 048
     Dates: start: 2010
  2. USTEKINUMAB [Suspect]
     Active Substance: USTEKINUMAB
     Indication: CROHN^S DISEASE
     Route: 065
     Dates: start: 20140513
  3. LOSEC [Concomitant]
     Active Substance: OMEPRAZOLE
     Indication: CROHN^S DISEASE
     Route: 048
     Dates: start: 1994
  4. MIDAZOLAM HYDROCHLORIDE. [Concomitant]
     Active Substance: MIDAZOLAM HYDROCHLORIDE
     Indication: SEDATION
     Dosage: ONCE
     Route: 040
     Dates: start: 20150606, end: 20150606
  5. ZANTAC [Concomitant]
     Active Substance: RANITIDINE HYDROCHLORIDE
     Indication: CROHN^S DISEASE
     Route: 048
     Dates: start: 20140709, end: 20140714
  6. FENTANYL. [Concomitant]
     Active Substance: FENTANYL
     Indication: SEDATION
     Route: 042
     Dates: start: 20150606, end: 20150606
  7. USTEKINUMAB [Suspect]
     Active Substance: USTEKINUMAB
     Indication: CROHN^S DISEASE
     Dosage: AT HER WEEK 52 MAINTENANCE VISIT
     Route: 065
     Dates: start: 20150707
  8. USTEKINUMAB [Suspect]
     Active Substance: USTEKINUMAB
     Indication: CROHN^S DISEASE
     Route: 065
     Dates: start: 20140708

REACTIONS (1)
  - Crohn^s disease [Recovered/Resolved]

NARRATIVE: CASE EVENT DATE: 20150722
